FAERS Safety Report 5975458-7 (Version None)
Quarter: 2008Q4

REPORT INFORMATION
  Report Type: 
  Country: None (occurrence: None)
  Receive Date: 20081202
  Receipt Date: 20081117
  Transmission Date: 20090506
  Serious: Yes (Death, Congenital Anomaly, Other)
  Sender: FDA-Public Use
  Company Number: US-BIOGENIDEC-2008BI031930

PATIENT

DRUGS (1)
  1. AVONEX [Suspect]

REACTIONS (3)
  - CARDIAC ARREST NEONATAL [None]
  - CEREBRAL PALSY [None]
  - CONGENITAL ANOMALY [None]
